FAERS Safety Report 17446565 (Version 1)
Quarter: 2020Q1

REPORT INFORMATION
  Report Type: Spontaneous
  Country: US (occurrence: US)
  Receive Date: 20200221
  Receipt Date: 20200221
  Transmission Date: 20200409
  Serious: No
  Sender: FDA-Public Use
  Company Number: US-PERRIGO-19US011969

PATIENT
  Age: 65 Year
  Sex: Female
  Weight: 80.73 kg

DRUGS (3)
  1. NOVOLIN N [Concomitant]
     Active Substance: INSULIN HUMAN
     Indication: TYPE 2 DIABETES MELLITUS
     Dosage: 70/30 FLEXPEN
     Route: 065
     Dates: start: 201907
  2. SELENIUM SULFIDE. [Suspect]
     Active Substance: SELENIUM SULFIDE
     Indication: DERMATITIS
     Dosage: 1 APPLICATION, SINGLE
     Route: 061
     Dates: start: 20191002, end: 20191002
  3. LEVOTHYROXINE. [Concomitant]
     Active Substance: LEVOTHYROXINE
     Indication: HYPOTHYROIDISM
     Dosage: 75 MCG
     Route: 065

REACTIONS (3)
  - Application site pain [Unknown]
  - Product administered at inappropriate site [Recovered/Resolved]
  - Application site erythema [Unknown]

NARRATIVE: CASE EVENT DATE: 20191002
